FAERS Safety Report 12168672 (Version 1)
Quarter: 2016Q1

REPORT INFORMATION
  Report Type: Spontaneous
  Country: JP (occurrence: JP)
  Receive Date: 20160310
  Receipt Date: 20160310
  Transmission Date: 20160526
  Serious: Yes (Other)
  Sender: FDA-Public Use
  Company Number: JP-PFIZER INC-2016140007

PATIENT
  Age: 60 Year
  Sex: Male

DRUGS (1)
  1. SUTENT [Suspect]
     Active Substance: SUNITINIB MALATE
     Indication: RENAL CELL CARCINOMA
     Dosage: 25 MG, CYCLIC (4 WEEKS ON/2 WEEKS OFF)
     Route: 048
     Dates: start: 200810

REACTIONS (9)
  - Hypothyroidism [Unknown]
  - Bile duct stone [Unknown]
  - Hypertension [Unknown]
  - Renal impairment [Unknown]
  - Palmar-plantar erythrodysaesthesia syndrome [Unknown]
  - Stomatitis [Unknown]
  - Gingival swelling [Unknown]
  - Gingivitis [Unknown]
  - Periodontitis [Unknown]

NARRATIVE: CASE EVENT DATE: 201006
